FAERS Safety Report 12835847 (Version 1)
Quarter: 2016Q4

REPORT INFORMATION
  Report Type: Spontaneous
  Country: CR (occurrence: CR)
  Receive Date: 20161011
  Receipt Date: 20161011
  Transmission Date: 20170207
  Serious: Yes (Other)
  Sender: FDA-Public Use
  Company Number: CR-PFIZER INC-2016455855

PATIENT
  Age: 15 Month
  Sex: Female

DRUGS (1)
  1. ZITHROMAX [Suspect]
     Active Substance: AZITHROMYCIN DIHYDRATE
     Indication: LOWER RESPIRATORY TRACT INFECTION
     Dosage: 2.5 ML, DAILY
     Route: 048
     Dates: start: 20160920

REACTIONS (4)
  - Sleep disorder [Recovered/Resolved]
  - Soliloquy [Recovered/Resolved]
  - Agitation [Recovered/Resolved]
  - Somnambulism [Recovered/Resolved]

NARRATIVE: CASE EVENT DATE: 20160921
